FAERS Safety Report 9269458 (Version 4)
Quarter: 2013Q3

REPORT INFORMATION
  Report Type: Spontaneous
  Country: KR (occurrence: KR)
  Receive Date: 20130503
  Receipt Date: 20130710
  Transmission Date: 20140515
  Serious: Yes (Hospitalization, Other)
  Sender: FDA-Public Use
  Company Number: KR-JNJFOC-20130415874

PATIENT
  Age: 10 Month
  Sex: Male

DRUGS (1)
  1. CHILDRENS TYLENOL [Suspect]
     Indication: PYREXIA
     Dosage: 2- 5 TIMES A DAY
     Route: 048
     Dates: start: 201210, end: 201304

REACTIONS (11)
  - Hepatic enzyme increased [Recovered/Resolved]
  - Pancytopenia [Unknown]
  - Pneumonia cytomegaloviral [Unknown]
  - Body temperature increased [Unknown]
  - Diarrhoea [Recovered/Resolved]
  - Vomiting [Recovered/Resolved]
  - Weight decreased [Unknown]
  - Central nervous system stimulation [Unknown]
  - Grimacing [Unknown]
  - Drug ineffective [Unknown]
  - Hypophagia [Unknown]
